FAERS Safety Report 4575615-0 (Version None)
Quarter: 2005Q1

REPORT INFORMATION
  Report Type: 
  Country: None (occurrence: None)
  Receive Date: 20050209
  Receipt Date: 20050204
  Transmission Date: 20050727
  Serious: Yes (Other)
  Sender: FDA-Public Use
  Company Number: US-GLAXOSMITHKLINE-A0543959A

PATIENT
  Age: 18 Year
  Sex: Female

DRUGS (2)
  1. MALARONE [Suspect]
     Indication: MALARIA
     Route: 048
  2. YASMIN [Concomitant]

REACTIONS (3)
  - DISORIENTATION [None]
  - DIZZINESS [None]
  - HALLUCINATION [None]
